FAERS Safety Report 10371798 (Version 1)
Quarter: 2014Q1

REPORT INFORMATION
  Report Type: Spontaneous
  Country: US (occurrence: None)
  Receive Date: 20140306
  Receipt Date: 20140306
  Transmission Date: 20141002
  Serious: Yes (Hospitalization)
  Sender: FDA-Public Use
  Company Number: 163-21880-13083898

PATIENT
  Age: 85 Year
  Sex: Female
  Weight: 57.15 kg

DRUGS (13)
  1. REVLIMID (LENALIDOMIDE) (10 MILLIGRAM, CAPSULES) [Suspect]
     Indication: PLASMA CELL MYELOMA
     Dosage: 10 MG, 21 IN 28 D, PO
     Route: 048
     Dates: start: 20130702, end: 201308
  2. FERUMOXYTOL (FERUMOXYTOL) (UNKNOWN) [Concomitant]
  3. EPOETIN ALFA (EPOETIN ALFA) (UNKNOWN) [Concomitant]
  4. ZOLEDRONIC ACID (ZOLEDRONIC ACID) (UNKNOWN) [Concomitant]
  5. CARVEDILOL (CARVEDILOL) (UNKNOWN) [Concomitant]
  6. ASPIRIN (ACETYLSALICYLIC ACID) (UNKNOWN) (ACETYLSALICYLIC ACID) [Concomitant]
  7. DULOXETINE (DULOXETINE) (UNKNOWN) [Concomitant]
  8. DOXEPIN (DOXEPIN) (UNKNOWN) [Concomitant]
  9. MEGESTROL (MEGESTROL) (UNKNOWN) [Concomitant]
  10. MELOXICAM (MELOXICAM) (UNKNOWN) [Concomitant]
  11. NAPROXEN (NAPROXEN) (UNKNOWN) [Concomitant]
  12. OMEPRAZOLE (OMEPRAZOLE) (UNKNOWN) [Concomitant]
  13. TRAMADOL (TRAMADOL) (UNKNOWN) [Concomitant]

REACTIONS (2)
  - Neutropenia [None]
  - Pneumonia [None]
